FAERS Safety Report 8074576-X (Version None)
Quarter: 2012Q1

REPORT INFORMATION
  Report Type: 
  Country: None (occurrence: None)
  Receive Date: 20120126
  Receipt Date: 20120123
  Transmission Date: 20120608
  Serious: Yes (Other)
  Sender: FDA-Public Use
  Company Number: US-PFIZER INC-2012018555

PATIENT
  Sex: Male
  Weight: 74.83 kg

DRUGS (2)
  1. GEODON [Suspect]
     Dosage: 40 MG, 1X/DAY
     Route: 048
     Dates: start: 20090101
  2. GEODON [Suspect]
     Indication: BIPOLAR DISORDER
     Dosage: 60 MG, 1X/DAY
     Route: 048
     Dates: start: 20090101, end: 20090101

REACTIONS (4)
  - ACTIVITIES OF DAILY LIVING IMPAIRED [None]
  - ASTHENIA [None]
  - DELUSION [None]
  - SOMNOLENCE [None]
